FAERS Safety Report 26023565 (Version 1)
Quarter: 2025Q4

REPORT INFORMATION
  Report Type: Spontaneous
  Country: LB (occurrence: LB)
  Receive Date: 20251111
  Receipt Date: 20251111
  Transmission Date: 20260118
  Serious: Yes (Hospitalization, Other)
  Sender: BIOLOGICAL E. LIMITED
  Company Number: LB-BELUSA-2025BELLIT0066

PATIENT

DRUGS (6)
  1. NEOSTIGMINE METHYLSULFATE [Suspect]
     Active Substance: NEOSTIGMINE METHYLSULFATE
     Indication: Anaesthesia
     Dosage: (0.04 MG/KG)
  2. ATROPINE [Suspect]
     Active Substance: ATROPINE
     Indication: Anaesthesia
     Dosage: (0.02 MG/KG)
  3. PROPOFOL [Concomitant]
     Active Substance: PROPOFOL
     Indication: General anaesthesia
  4. FENTANYL [Concomitant]
     Active Substance: FENTANYL
     Indication: General anaesthesia
  5. ROCURONIUM [Concomitant]
     Active Substance: ROCURONIUM BROMIDE
     Indication: Endotracheal intubation
  6. SEVOFLURANE [Concomitant]
     Active Substance: SEVOFLURANE
     Indication: General anaesthesia
     Dosage: (1.0 MINIMUM ALVEOLAR CONCENTRATION) IN A 50% OXYGEN/AIR MIXTURE.
     Route: 065

REACTIONS (2)
  - Ventricular fibrillation [Recovered/Resolved]
  - Stress cardiomyopathy [Recovered/Resolved]
